FAERS Safety Report 15320871 (Version 7)
Quarter: 2019Q1

REPORT INFORMATION
  Report Type: Report from Study
  Country: US (occurrence: US)
  Receive Date: 20180827
  Receipt Date: 20190124
  Transmission Date: 20190417
  Serious: Yes (Other)
  Sender: FDA-Public Use
  Company Number: US-PFIZER INC-2018342321

PATIENT
  Age: 62 Year
  Sex: Female

DRUGS (4)
  1. IBRANCE [Suspect]
     Active Substance: PALBOCICLIB
     Indication: BREAST CANCER FEMALE
     Dosage: 125 MG, DAILY, CYCLIC [21 DAYS ON AND 7 DAYS OFF]
     Route: 048
     Dates: start: 20180726, end: 20180920
  2. IBRANCE [Suspect]
     Active Substance: PALBOCICLIB
     Dosage: EVERY OTHER DAY FOR 30 DAYS, THEN 7 DAYS OFF
     Route: 048
     Dates: start: 20181022
  3. FEMARA [Suspect]
     Active Substance: LETROZOLE
     Indication: BREAST CANCER FEMALE
     Dosage: UNK , DAILY
     Route: 048
  4. IBRANCE [Suspect]
     Active Substance: PALBOCICLIB
     Dosage: 125 MG, CYCLIC [DAILY FOR 21 DAYS ON AND 7 DAYS OFF]
     Route: 048
     Dates: start: 20180726, end: 20190110

REACTIONS (19)
  - Dysgeusia [Recovering/Resolving]
  - Pyrexia [Unknown]
  - Night sweats [Recovering/Resolving]
  - Dry skin [Recovering/Resolving]
  - Dry throat [Unknown]
  - Influenza [Recovering/Resolving]
  - Headache [Recovering/Resolving]
  - Mucosal inflammation [Not Recovered/Not Resolved]
  - Fatigue [Not Recovered/Not Resolved]
  - Nasal congestion [Unknown]
  - Dysphonia [Unknown]
  - Vision blurred [Recovering/Resolving]
  - Dyspnoea [Recovering/Resolving]
  - Visual impairment [Recovering/Resolving]
  - Pain in extremity [Unknown]
  - Bone marrow failure [Recovering/Resolving]
  - Hot flush [Recovering/Resolving]
  - Lacrimation increased [Recovering/Resolving]
  - Dizziness [Recovering/Resolving]

NARRATIVE: CASE EVENT DATE: 2018
